FAERS Safety Report 5331313-7 (Version None)
Quarter: 2007Q2

REPORT INFORMATION
  Report Type: 
  Country: None (occurrence: None)
  Receive Date: 20070522
  Receipt Date: 20070514
  Transmission Date: 20071010
  Serious: Yes (Disabling, Other)
  Sender: FDA-Public Use
  Company Number: US-PURDUE-USA_2007_0027379

PATIENT
  Age: 74 Year
  Sex: Male

DRUGS (1)
  1. OXYCONTIN [Suspect]
     Indication: BACK PAIN
     Dosage: 80 MG, TID
     Route: 048

REACTIONS (9)
  - AMNESIA [None]
  - ANOREXIA [None]
  - DEAFNESS [None]
  - DEPRESSION [None]
  - FEAR [None]
  - GASTRIC DISORDER [None]
  - NAUSEA [None]
  - PARANOIA [None]
  - TOOTH EXTRACTION [None]
